FAERS Safety Report 10077726 (Version 2)
Quarter: 2014Q2

REPORT INFORMATION
  Report Type: Report from Study
  Country: US (occurrence: US)
  Receive Date: 20140414
  Receipt Date: 20140421
  Transmission Date: 20141212
  Serious: Yes (Other)
  Sender: FDA-Public Use
  Company Number: PHEH2014US007269

PATIENT
  Age: 36 Year
  Sex: Female
  Weight: 111 kg

DRUGS (7)
  1. GILENYA [Suspect]
     Indication: MULTIPLE SCLEROSIS
     Dosage: 0.5 MG, QD
     Route: 048
     Dates: start: 20131003
  2. TAMSULOSIN [Concomitant]
     Dosage: 1 DF, QD
     Route: 048
  3. OXYBUTYNIN [Concomitant]
     Dosage: 1 DF, QD
     Route: 048
  4. OXCARBAZEPINE [Concomitant]
     Indication: MUSCLE SPASMS
     Dosage: 300 MG, UNK
     Route: 048
  5. CALCIUM CARBONATE W/VITAMIN D      /00944201/ [Concomitant]
     Dosage: 1 DF, QD
     Route: 048
  6. VITAMIN D [Concomitant]
     Dosage: 6000 MG, DAILY
     Route: 048
  7. MULTIVITAMIN                       /00097801/ [Concomitant]
     Dosage: 1 DF, QD
     Route: 048

REACTIONS (6)
  - Cyst [Unknown]
  - Intervertebral disc degeneration [Unknown]
  - Lymphocyte count decreased [Unknown]
  - Mean platelet volume decreased [Unknown]
  - Mean cell volume increased [Unknown]
  - Neutrophil count increased [Unknown]
